FAERS Safety Report 6526117-3 (Version None)
Quarter: 2010Q1

REPORT INFORMATION
  Report Type: 
  Country: None (occurrence: None)
  Receive Date: 20100104
  Receipt Date: 20091222
  Transmission Date: 20100710
  Serious: Yes (Other)
  Sender: FDA-Public Use
  Company Number: JP-PFIZER INC-2009314513

PATIENT
  Sex: Female

DRUGS (1)
  1. DALACIN [Suspect]
     Indication: MYCOPLASMA INFECTION
     Route: 042

REACTIONS (1)
  - ESCHERICHIA SEPSIS [None]
